FAERS Safety Report 25766108 (Version 1)
Quarter: 2025Q3

REPORT INFORMATION
  Report Type: Spontaneous
  Country: US (occurrence: US)
  Receive Date: 20250905
  Receipt Date: 20250905
  Transmission Date: 20251020
  Serious: No
  Sender: DOMPE FARMACEUTICI
  Company Number: US-FARMAPROD-202408-2783

PATIENT
  Age: 70 Year
  Sex: Female

DRUGS (13)
  1. OXERVATE [Suspect]
     Active Substance: CENEGERMIN-BKBJ
     Indication: Neurotrophic keratopathy
     Route: 047
     Dates: start: 20240725
  2. OXERVATE [Suspect]
     Active Substance: CENEGERMIN-BKBJ
  3. RESTASIS [Concomitant]
     Active Substance: CYCLOSPORINE
  4. GABAPENTIN [Concomitant]
     Active Substance: GABAPENTIN
  5. CLONAZEPAM [Concomitant]
     Active Substance: CLONAZEPAM
  6. SODIUM BICARBONATE [Concomitant]
     Active Substance: SODIUM BICARBONATE
  7. LISINOPRIL [Concomitant]
     Active Substance: LISINOPRIL
  8. MULTIVITAMIN 50 PLUS [Concomitant]
  9. CITRACAL-D3 [Concomitant]
  10. LOTEPREDNOL ETABONATE [Concomitant]
     Active Substance: LOTEPREDNOL ETABONATE
  11. TYLENOL [Concomitant]
     Active Substance: ACETAMINOPHEN
  12. IBUPROFEN [Concomitant]
     Active Substance: IBUPROFEN
  13. FIBERCON [Concomitant]
     Active Substance: CALCIUM POLYCARBOPHIL

REACTIONS (10)
  - Eye pain [Not Recovered/Not Resolved]
  - Photophobia [Unknown]
  - Eyelid pain [Unknown]
  - Eyelid irritation [Unknown]
  - Eye irritation [Not Recovered/Not Resolved]
  - Ocular discomfort [Unknown]
  - Eye swelling [Unknown]
  - Eye pruritus [Unknown]
  - Ocular hyperaemia [Unknown]
  - Product dose omission issue [Unknown]

NARRATIVE: CASE EVENT DATE: 20240806
